FAERS Safety Report 7507068-4 (Version None)
Quarter: 2011Q2

REPORT INFORMATION
  Report Type: 
  Country: None (occurrence: None)
  Receive Date: 20110526
  Receipt Date: 20110518
  Transmission Date: 20111010
  Serious: Yes (Other)
  Sender: FDA-Public Use
  Company Number: US-ALLERGAN-1106853US

PATIENT
  Age: 52 Year
  Sex: Male

DRUGS (2)
  1. COMBIGAN [Suspect]
     Indication: GLAUCOMA
     Dosage: 1 DROP INSTILLED TWICE DAILY TO THE RIGHT EYE
     Route: 047
     Dates: start: 20110504
  2. LATANOPROST [Suspect]
     Indication: GLAUCOMA
     Dosage: 1 DROP INSTILLED EVERY NIGHT AT BEDTIME TO THE RIGHT EYE
     Route: 047
     Dates: start: 20110513

REACTIONS (4)
  - CORNEAL INFECTION [None]
  - BLINDNESS UNILATERAL [None]
  - HEADACHE [None]
  - ABNORMAL SENSATION IN EYE [None]
